FAERS Safety Report 4385222-0 (Version None)
Quarter: 2004Q2

REPORT INFORMATION
  Report Type: 
  Country: None (occurrence: None)
  Receive Date: 20040625
  Receipt Date: 20030407
  Transmission Date: 20050107
  Serious: Yes (Other)
  Sender: FDA-Public Use
  Company Number: US-MERCK-0304USA00750

PATIENT
  Age: 25 Year
  Sex: Male
  Weight: 114 kg

DRUGS (2)
  1. VIOXX [Suspect]
     Indication: LIMB INJURY
     Route: 048
     Dates: start: 20010401, end: 20010101
  2. VIOXX [Suspect]
     Indication: MUSCLE STRAIN
     Route: 048
     Dates: start: 20010401, end: 20010101

REACTIONS (7)
  - DRUG HYPERSENSITIVITY [None]
  - GASTROOESOPHAGEAL REFLUX DISEASE [None]
  - HYPERTENSION [None]
  - INJURY [None]
  - INTESTINAL OBSTRUCTION [None]
  - MENINGITIS VIRAL [None]
  - OESOPHAGEAL DISORDER [None]
